FAERS Safety Report 10434805 (Version 1)
Quarter: 2014Q3

REPORT INFORMATION
  Report Type: Spontaneous
  Country: US (occurrence: None)
  Receive Date: 20140815
  Receipt Date: 20140815
  Transmission Date: 20150326
  Serious: No
  Sender: FDA-Public Use
  Company Number: 2014TUS003861

PATIENT
  Age: 59 Year
  Sex: Female
  Weight: 71.7 kg

DRUGS (3)
  1. BRINTELLIX [Suspect]
     Active Substance: VORTIOXETINE HYDROBROMIDE
     Indication: DEPRESSION
     Route: 048
     Dates: start: 201401
  2. LORAZEPAM. [Concomitant]
     Active Substance: LORAZEPAM
  3. INSULIN [Concomitant]
     Active Substance: INSULIN NOS

REACTIONS (8)
  - Constipation [None]
  - Libido decreased [None]
  - Somnolence [None]
  - Weight increased [None]
  - Increased appetite [None]
  - Blood glucose increased [None]
  - Glycosylated haemoglobin increased [None]
  - Confusional state [None]
